FAERS Safety Report 18590149 (Version 1)
Quarter: 2020Q4

REPORT INFORMATION
  Report Type: Spontaneous
  Country: PL (occurrence: PL)
  Receive Date: 20201208
  Receipt Date: 20201208
  Transmission Date: 20210114
  Serious: Yes (Life-Threatening, Hospitalization)
  Sender: FDA-Public Use
  Company Number: PL-TEVA-2020-PL-1856102

PATIENT
  Age: 40 Year
  Sex: Female

DRUGS (17)
  1. ALBUMIN [Concomitant]
     Active Substance: ALBUMIN HUMAN
     Indication: PRODUCT USED FOR UNKNOWN INDICATION
     Dosage: 20 GRAM DAILY; ONCE DAILY
     Route: 041
  2. SPIRONOLACTONE. [Concomitant]
     Active Substance: SPIRONOLACTONE
     Indication: DIURETIC THERAPY
     Dosage: 200 MILLIGRAM DAILY; ONCE DAILY
     Route: 042
  3. SPIRONOLACTONE. [Concomitant]
     Active Substance: SPIRONOLACTONE
     Indication: ALCOHOLIC LIVER DISEASE
  4. FUROSEMIDE. [Concomitant]
     Active Substance: FUROSEMIDE
     Indication: ALCOHOLIC LIVER DISEASE
  5. ORNITHINE-ASPARTATE [Concomitant]
     Active Substance: ORNITHINE ASPARTATE
     Indication: ALCOHOLIC LIVER DISEASE
  6. TOCILIZUMAB. [Suspect]
     Active Substance: TOCILIZUMAB
     Indication: COVID-19 PNEUMONIA
     Route: 065
  7. CEFTRIAXONE. [Suspect]
     Active Substance: CEFTRIAXONE
     Indication: COVID-19 PNEUMONIA
     Dosage: 2 GRAM DAILY; DAILY
     Route: 042
  8. AZITHROMYCIN ANHYDROUS. [Suspect]
     Active Substance: AZITHROMYCIN ANHYDROUS
     Indication: COVID-19 PNEUMONIA
     Dosage: 500 MILLIGRAM DAILY;
     Route: 048
  9. VITAMIN K [Concomitant]
     Active Substance: PHYTONADIONE
     Indication: ALCOHOLIC LIVER DISEASE
     Route: 065
  10. LOPINAVIR/RITONAVIR [Suspect]
     Active Substance: LOPINAVIR\RITONAVIR
     Indication: COVID-19 PNEUMONIA
     Dosage: 2 DOSAGE FORMS DAILY; 1DF = 400 MG/100 MG; TWICE DAILY
     Route: 048
  11. SILIBININ [Concomitant]
     Active Substance: SILIBININ
     Indication: ALCOHOLIC LIVER DISEASE
     Dosage: 420 MILLIGRAM DAILY; 3 TIMES DAILY
     Route: 048
  12. CHLOROQUINE. [Suspect]
     Active Substance: CHLOROQUINE
     Indication: COVID-19 PNEUMONIA
     Dosage: 1000 MILLIGRAM DAILY; 500MG TWICE A DAY
     Route: 048
  13. MEROPENEM. [Suspect]
     Active Substance: MEROPENEM
     Indication: COVID-19 PNEUMONIA
     Dosage: 3 GRAM DAILY; 3 TIMES DAILY
     Route: 042
  14. LINEZOLID. [Suspect]
     Active Substance: LINEZOLID
     Indication: COVID-19 PNEUMONIA
     Dosage: 1200 MILLIGRAM DAILY; 600MG TWICE DAILY
     Route: 042
  15. ORNITHINE-ASPARTATE [Concomitant]
     Active Substance: ORNITHINE ASPARTATE
     Indication: DIURETIC THERAPY
     Dosage: 6 GRAM DAILY; 3G TWICE DAILY
     Route: 048
  16. NOREPINEPHRINE. [Suspect]
     Active Substance: NOREPINEPHRINE
     Indication: HAEMODYNAMIC INSTABILITY
     Route: 065
  17. FUROSEMIDE. [Concomitant]
     Active Substance: FUROSEMIDE
     Indication: DIURETIC THERAPY
     Dosage: 80 MILLIGRAM DAILY; ONCE DAILY
     Route: 048

REACTIONS (2)
  - Drug ineffective [Unknown]
  - Off label use [Unknown]
